FAERS Safety Report 7014733-4 (Version None)
Quarter: 2010Q3

REPORT INFORMATION
  Report Type: 
  Country: None (occurrence: None)
  Receive Date: 20100927
  Receipt Date: 20100922
  Transmission Date: 20110219
  Serious: Yes (Life-Threatening)
  Sender: FDA-Public Use
  Company Number: PHHY2010US63096

PATIENT
  Sex: Female

DRUGS (1)
  1. GENTEAL (NVO) [Suspect]
     Route: 047

REACTIONS (1)
  - HYPERSENSITIVITY [None]
